FAERS Safety Report 20859889 (Version 4)
Quarter: 2022Q3

REPORT INFORMATION
  Report Type: Report from Study
  Country: US (occurrence: US)
  Receive Date: 20220523
  Receipt Date: 20220712
  Transmission Date: 20221027
  Serious: Yes (Hospitalization, Other)
  Sender: FDA-Public Use
  Company Number: US-EXELIXIS-CABO-22052008

PATIENT
  Age: 79 Year
  Sex: Female
  Weight: 59.41 kg

DRUGS (21)
  1. CABOMETYX [Suspect]
     Active Substance: CABOZANTINIB S-MALATE
     Indication: Metastatic renal cell carcinoma
     Dosage: 20 MG, QD
     Route: 048
     Dates: start: 202102, end: 202206
  2. CABOMETYX [Suspect]
     Active Substance: CABOZANTINIB S-MALATE
     Dosage: 20 MG, QD
     Route: 048
     Dates: start: 202206
  3. NORVASC [Concomitant]
     Active Substance: AMLODIPINE BESYLATE
     Dosage: UNK
  4. LIPITOR [Concomitant]
     Active Substance: ATORVASTATIN CALCIUM
     Dosage: UNK
  5. BUMEX [Concomitant]
     Active Substance: BUMETANIDE
     Dosage: UNK
  6. CALCIUM CARBONATE [Concomitant]
     Active Substance: CALCIUM CARBONATE
     Dosage: UNK
  7. CHOLECALCIFEROL [Concomitant]
     Active Substance: CHOLECALCIFEROL
     Dosage: UNK
  8. ELIQUIS [Concomitant]
     Active Substance: APIXABAN
     Dosage: UNK
  9. PEPCID [Concomitant]
     Active Substance: FAMOTIDINE
     Dosage: UNK
  10. SYNTHROID [Concomitant]
     Active Substance: LEVOTHYROXINE SODIUM
     Dosage: UNK
  11. CYTOMEL [Concomitant]
     Active Substance: LIOTHYRONINE SODIUM
     Dosage: UNK
  12. MEGACE ES [Concomitant]
     Active Substance: MEGESTROL ACETATE
     Dosage: UNK
  13. PRILOSEC [Concomitant]
     Active Substance: OMEPRAZOLE MAGNESIUM
     Dosage: UNK
  14. ROXICODONE [Concomitant]
     Active Substance: OXYCODONE HYDROCHLORIDE
     Indication: Pain
  15. XTAMPZA ER [Concomitant]
     Active Substance: OXYCODONE
     Dosage: UNK
  16. K-DUR [Concomitant]
     Active Substance: POTASSIUM CHLORIDE
     Dosage: UNK
  17. KLOR-CON [Concomitant]
     Active Substance: POTASSIUM CHLORIDE
     Dosage: UNK
  18. COMPAZINE [Concomitant]
     Active Substance: PROCHLORPERAZINE MALEATE
     Dosage: UNK
  19. Carmol [Concomitant]
     Dosage: UNK
  20. HEPARIN [Concomitant]
     Active Substance: HEPARIN SODIUM
     Dosage: UNK
  21. SALINE [Concomitant]
     Active Substance: SODIUM CHLORIDE
     Dosage: UNK

REACTIONS (22)
  - Sepsis [Unknown]
  - Acute kidney injury [Recovering/Resolving]
  - Ascites [Recovering/Resolving]
  - Hypotension [Recovering/Resolving]
  - Blood chloride increased [Recovered/Resolved]
  - Cholelithiasis [Unknown]
  - Renal cyst [Unknown]
  - Urinary tract infection bacterial [Unknown]
  - Cellulitis [Unknown]
  - Carbon dioxide decreased [Unknown]
  - Platelet morphology abnormal [Unknown]
  - Hypophagia [Unknown]
  - Hyperkalaemia [Recovered/Resolved]
  - Blood calcium decreased [Unknown]
  - Diarrhoea [Unknown]
  - Blood sodium decreased [Unknown]
  - Dehydration [Unknown]
  - Blood alkaline phosphatase increased [Unknown]
  - Hepatic function abnormal [Unknown]
  - Hypovolaemia [Unknown]
  - Hepatic mass [Unknown]
  - Retroperitoneal mass [Unknown]

NARRATIVE: CASE EVENT DATE: 20220513
